FAERS Safety Report 19945701 (Version 1)
Quarter: 2021Q4

REPORT INFORMATION
  Report Type: Spontaneous
  Country: DE (occurrence: DE)
  Receive Date: 20211012
  Receipt Date: 20211012
  Transmission Date: 20220303
  Serious: Yes (Hospitalization)
  Sender: FDA-Public Use
  Company Number: DE-ADRED-05816-01

PATIENT
  Age: 64 Year
  Sex: Female

DRUGS (3)
  1. PACLITAXEL [Suspect]
     Active Substance: PACLITAXEL
     Indication: Product used for unknown indication
     Dosage: UNK (ACCORDING TO SCHEME, INJECTION SOLUTION/INFUSION SOLUTION)
     Route: 042
  2. BISOPROLOL [Suspect]
     Active Substance: BISOPROLOL
     Indication: Product used for unknown indication
     Dosage: 5 MILLIGRAM, QD
     Route: 048
  3. BEVACIZUMAB [Suspect]
     Active Substance: BEVACIZUMAB
     Indication: Product used for unknown indication
     Dosage: UNK (ACCORDING TO SCHEME, INJECTION SOLUTION/INFUSION SOLUTION)
     Route: 042

REACTIONS (2)
  - Syncope [Unknown]
  - Taste disorder [Unknown]
